FAERS Safety Report 13554310 (Version 1)
Quarter: 2017Q2

REPORT INFORMATION
  Report Type: Spontaneous
  Country: US (occurrence: US)
  Receive Date: 20170517
  Receipt Date: 20170517
  Transmission Date: 20170830
  Serious: Yes (Death, Hospitalization, Other)
  Sender: FDA-Public Use
  Company Number: US-APOTEX-2017AP012126

PATIENT
  Age: 86 Year
  Sex: Male

DRUGS (1)
  1. CYCLOSPORINE. [Suspect]
     Active Substance: CYCLOSPORINE
     Indication: RASH
     Route: 065

REACTIONS (5)
  - Extrapulmonary tuberculosis [Fatal]
  - Renal failure [Fatal]
  - Pleural effusion [Fatal]
  - Failure to thrive [Unknown]
  - Respiratory failure [Fatal]
